FAERS Safety Report 4594793-0 (Version None)
Quarter: 2005Q1

REPORT INFORMATION
  Report Type: 
  Country: None (occurrence: None)
  Receive Date: 20050223
  Receipt Date: 20050207
  Transmission Date: 20050727
  Serious: Yes (Death)
  Sender: FDA-Public Use
  Company Number: 10249

PATIENT
  Age: 70 Year
  Sex: Male

DRUGS (15)
  1. METHOTREXATE [Suspect]
     Indication: BLADDER CANCER STAGE III
     Dosage: 20 MG
     Dates: start: 20041202, end: 20041202
  2. CISPLATIN [Suspect]
     Indication: BLADDER CANCER STAGE III
     Dosage: 35 MG
     Route: 042
     Dates: start: 20041203, end: 20041203
  3. VINBLASTINE SULFATE [Concomitant]
  4. DOXORUBICIN HCL [Concomitant]
  5. LEUCOVORIN CALCIUM [Concomitant]
  6. ALLOPURINOL [Concomitant]
  7. VALSARTAN [Concomitant]
  8. DOXAZOSIN MESYLATE [Concomitant]
  9. DILTIAZEM HYDROCHLORIDE [Concomitant]
  10. ACARBOSE [Concomitant]
  11. ASPIRIN [Concomitant]
  12. PROCHLORPER AZINE MALEATED [Concomitant]
  13. FAMOTIDINE [Concomitant]
  14. GRANISETRON  HCL [Concomitant]
  15. LENOGRASTIM [Concomitant]

REACTIONS (11)
  - ALANINE AMINOTRANSFERASE INCREASED [None]
  - ASPARTATE AMINOTRANSFERASE INCREASED [None]
  - BLOOD POTASSIUM INCREASED [None]
  - BLOOD PRESSURE DECREASED [None]
  - BONE MARROW DEPRESSION [None]
  - CARDIAC ARREST [None]
  - DIALYSIS [None]
  - ILEUS PARALYTIC [None]
  - MOUTH BREATHING [None]
  - RENAL DISORDER [None]
  - URINE OUTPUT DECREASED [None]
